FAERS Safety Report 4567899-X (Version None)
Quarter: 2005Q1

REPORT INFORMATION
  Report Type: 
  Country: None (occurrence: None)
  Receive Date: 20050128
  Receipt Date: 20030805
  Transmission Date: 20050727
  Serious: Yes (Death, Hospitalization)
  Sender: FDA-Public Use
  Company Number: GXKR2003ES00579

PATIENT
  Age: 76 Year
  Sex: Male

DRUGS (4)
  1. LEVODOPA+CARBIDOPA (NGX) (CARBIDOPA, LEVODOPA) [Suspect]
     Indication: PARKINSON'S DISEASE
  2. DIGOXIN [Concomitant]
  3. FUROSEMIDE (FUROSEMIDE) [Concomitant]
  4. ALLOPURINOL [Concomitant]

REACTIONS (1)
  - THROMBOCYTOPENIA [None]
